FAERS Safety Report 9458451 (Version 1)
Quarter: 2013Q3

REPORT INFORMATION
  Report Type: Spontaneous
  Country: BR (occurrence: BR)
  Receive Date: 20130814
  Receipt Date: 20130814
  Transmission Date: 20140515
  Serious: Yes (Death)
  Sender: FDA-Public Use
  Company Number: BR-PFIZER INC-2013115934

PATIENT
  Age: 73 Year
  Sex: Female

DRUGS (4)
  1. SUTENT [Suspect]
     Indication: RENAL CELL CARCINOMA
     Dosage: 1 CAPSULE OF 50 MG, 1X/DAY, CYCLIC (4 TO 2)
     Route: 048
     Dates: start: 20130304
  2. ATENOLOL [Concomitant]
     Dosage: 1 TABLET OF 50 MG DAILY
  3. PURAN T4 [Concomitant]
     Dosage: 1 DF, FASTING 1X/DAY
  4. PREDNISONE [Concomitant]
     Dosage: 5 MG IN THE MORNING AND 2.5 MG IN THE AFTERNOON (2X/DAY)

REACTIONS (9)
  - Death [Fatal]
  - Urinary incontinence [Unknown]
  - Pain in extremity [Unknown]
  - Pruritus genital [Unknown]
  - Pruritus [Not Recovered/Not Resolved]
  - Burning sensation [Unknown]
  - Rash [Not Recovered/Not Resolved]
  - Urticaria [Not Recovered/Not Resolved]
  - Erythema [Not Recovered/Not Resolved]
